FAERS Safety Report 25497605 (Version 1)
Quarter: 2025Q3

REPORT INFORMATION
  Report Type: Spontaneous
  Country: TH (occurrence: TH)
  Receive Date: 20250701
  Receipt Date: 20250701
  Transmission Date: 20251021
  Serious: Yes (Death)
  Sender: MERCK SHARP & DOHME LLC
  Company Number: TH-009507513-2011362

PATIENT
  Age: 74 Year
  Sex: Male
  Weight: 48.6 kg

DRUGS (1)
  1. KEYTRUDA [Suspect]
     Active Substance: PEMBROLIZUMAB
     Indication: Non-small cell lung cancer metastatic
     Dosage: 100 MG, IV, Q 3 WEEKS
     Route: 042
     Dates: start: 20241107, end: 20241107

REACTIONS (4)
  - Chest discomfort [Fatal]
  - Off label use [Unknown]
  - Dyspnoea [Fatal]
  - Fatigue [Fatal]

NARRATIVE: CASE EVENT DATE: 20241107
